FAERS Safety Report 6126447-3 (Version None)
Quarter: 2009Q1

REPORT INFORMATION
  Report Type: 
  Country: None (occurrence: None)
  Receive Date: 20090320
  Receipt Date: 20090313
  Transmission Date: 20090719
  Serious: Yes (Other)
  Sender: FDA-Public Use
  Company Number: DE-AMGEN-UK338267

PATIENT
  Sex: Female

DRUGS (1)
  1. MIMPARA [Suspect]
     Indication: HYPERPARATHYROIDISM SECONDARY

REACTIONS (4)
  - BLOOD PARATHYROID HORMONE INCREASED [None]
  - CARDIAC FAILURE [None]
  - LEFT VENTRICULAR DYSFUNCTION [None]
  - LUNG DISORDER [None]
